FAERS Safety Report 6573308-1 (Version None)
Quarter: 2010Q1

REPORT INFORMATION
  Report Type: 
  Country: None (occurrence: None)
  Receive Date: 20100203
  Receipt Date: 20100203
  Transmission Date: 20100710
  Serious: Yes (Other)
  Sender: FDA-Public Use
  Company Number: None

PATIENT
  Age: 63 Year
  Sex: Male
  Weight: 76.2043 kg

DRUGS (1)
  1. METOPROLOL SUCCINATE [Suspect]
     Indication: HYPERTENSION
     Dosage: 50 MG. ONCE
     Dates: start: 20100128, end: 20100202

REACTIONS (5)
  - DIZZINESS [None]
  - LETHARGY [None]
  - PERIPHERAL COLDNESS [None]
  - PRODUCT SUBSTITUTION ISSUE [None]
  - VISUAL IMPAIRMENT [None]
